FAERS Safety Report 8167498-7 (Version None)
Quarter: 2012Q1

REPORT INFORMATION
  Report Type: 
  Country: None (occurrence: None)
  Receive Date: 20120103
  Receipt Date: 20111009
  Transmission Date: 20120608
  Serious: No
  Sender: FDA-Public Use
  Company Number: AE-2011-002162

PATIENT
  Age: 59 Year
  Sex: Female
  Weight: 92.9874 kg

DRUGS (8)
  1. VITAMIN B12 [Concomitant]
  2. HYDROCHLOROTHIAZIDE [Concomitant]
  3. RIBAVIRIN [Concomitant]
  4. LISINOPRIL [Concomitant]
  5. PEGASYS [Concomitant]
  6. AMLODIPINE [Concomitant]
  7. INCIVEK [Suspect]
     Dosage: 2250 MG (750 MG, 1 IN 8 HR), ORAL
     Route: 048
  8. CALCIUM WITH VITAMIN D (CALCIUM WITH VITAMIN D) [Concomitant]

REACTIONS (5)
  - DIARRHOEA [None]
  - DRUG ADMINISTRATION ERROR [None]
  - DYSGEUSIA [None]
  - PRURITUS [None]
  - HEADACHE [None]
